FAERS Safety Report 9625054 (Version 1)
Quarter: 2013Q4

REPORT INFORMATION
  Report Type: Spontaneous
  Country: DE (occurrence: None)
  Receive Date: 20131010
  Receipt Date: 20131010
  Transmission Date: 20140711
  Serious: Yes (Other)
  Sender: FDA-Public Use
  Company Number: 2013S1000062

PATIENT
  Age: 43 Year
  Sex: Female
  Weight: 125 kg

DRUGS (8)
  1. KRYSTEXXA (PEGLOTICASE) (PEGLOTICASE) [Suspect]
     Indication: GOUTY TOPHUS
     Route: 042
     Dates: end: 201304
  2. FEBUXOSTAT (FEBUXOSTAT) [Concomitant]
  3. ALISKIREN (ALISKIREN) [Concomitant]
  4. AMLODIPINE (AMLODIPINE) [Concomitant]
  5. TILIDIN + NALOXONE (VALORON) [Concomitant]
  6. CLEMASTIN (CLEMASTINE FUMARATE) [Concomitant]
  7. COLCHICINE (COLCHICINE) [Concomitant]
  8. PREDNISOLONE (PREDNISOLONE) [Concomitant]

REACTIONS (3)
  - Infusion related reaction [None]
  - Gout [None]
  - Therapeutic response decreased [None]
